FAERS Safety Report 9602268 (Version 2)
Quarter: 2013Q4

REPORT INFORMATION
  Report Type: Spontaneous
  Country: GB (occurrence: None)
  Receive Date: 20131003
  Receipt Date: 20131015
  Transmission Date: 20140711
  Serious: Yes (Other)
  Sender: FDA-Public Use
  Company Number: KAD201309-001270

PATIENT
  Age: 65 Year
  Sex: Female

DRUGS (5)
  1. RIBAVIRIN [Suspect]
     Indication: HEPATITIS C
     Route: 048
     Dates: start: 20130213
  2. INTERFERON ALFA-2B [Suspect]
     Indication: HEPATITIS C
     Route: 058
     Dates: start: 20130213
  3. INCIVO [Concomitant]
     Indication: HEPATITIS C
     Dates: start: 20130213, end: 20130306
  4. INTERFERON ALFA-2A [Suspect]
     Indication: HEPATITIS C
     Dates: start: 20130213, end: 20130306
  5. BENDROFLUMETHIAZIDE (BENDROFLUAZIDE) [Concomitant]

REACTIONS (20)
  - Abdominal discomfort [None]
  - Asthenia [None]
  - Blood creatinine increased [None]
  - Blood pressure decreased [None]
  - Abdominal distension [None]
  - Dizziness [None]
  - Dry mouth [None]
  - Fatigue [None]
  - Feeling hot [None]
  - Feeling abnormal [None]
  - Local swelling [None]
  - Lethargy [None]
  - Heart rate decreased [None]
  - Rash [None]
  - Renal disorder [None]
  - Malaise [None]
  - Back pain [None]
  - Swelling face [None]
  - Local swelling [None]
  - Polyuria [None]
